FAERS Safety Report 5338519-1 (Version None)
Quarter: 2007Q2

REPORT INFORMATION
  Report Type: 
  Country: None (occurrence: None)
  Receive Date: 20070405
  Receipt Date: 20061106
  Transmission Date: 20071010
  Serious: No
  Sender: FDA-Public Use
  Company Number: US200611000919

PATIENT
  Age: 41 Year
  Sex: Female

DRUGS (11)
  1. CYMBALTA [Suspect]
     Indication: DEPRESSION
     Dosage: 60 MG 2/D ORAL
     Route: 048
     Dates: start: 20050401
  2. XANAX /USA/(ALPRAZOLAM) [Concomitant]
  3. HYDROCHLOROTHIAZIDE [Concomitant]
  4. MONOPRIL [Concomitant]
  5. LORCET-HD [Concomitant]
  6. MULTIVITAMINS (ASCORBIC ACID, ERGOCALCIFEROL, FOLIC ACID, NICOTINAMIDE [Concomitant]
  7. ROBAXIN [Concomitant]
  8. ZYRTEC [Concomitant]
  9. DOXYCYCLINE [Concomitant]
  10. LYSINE (LYSINE) [Concomitant]
  11. EFFEXOR [Concomitant]

REACTIONS (11)
  - BACK DISORDER [None]
  - BRONCHITIS [None]
  - ECONOMIC PROBLEM [None]
  - FEELING JITTERY [None]
  - FEELING OF DESPAIR [None]
  - HEADACHE [None]
  - LOSS OF EMPLOYMENT [None]
  - MENTAL DISORDER [None]
  - NECK PAIN [None]
  - STRESS [None]
  - WALKING DISABILITY [None]
